FAERS Safety Report 9557462 (Version 1)
Quarter: 2013Q3

REPORT INFORMATION
  Report Type: Spontaneous
  Country: US (occurrence: None)
  Receive Date: 20130726
  Receipt Date: 20130726
  Transmission Date: 20140515
  Serious: Yes (Hospitalization)
  Sender: FDA-Public Use
  Company Number: UTC-019823

PATIENT
  Age: 18 Year
  Sex: Female

DRUGS (3)
  1. REMODULIN (10 MILLIGRAM/MILLILITERS, INJECTION FOR INFUSION) (TREPROSTINIL SODIUM) [Suspect]
     Indication: PULMONARY ARTERIAL HYPERTENSION
     Dosage: 237.6 UG/KG (0.165 UG/KG, 1 IN 1 MIN), INTRAVENOUS
     Dates: start: 201007
  2. LETAIRIS (AMBRISENTAN) (TABLETS) [Concomitant]
  3. REVATIO (SILDENAFIL CITRATE) [Concomitant]

REACTIONS (3)
  - Vomiting [None]
  - Swelling [None]
  - Hypotension [None]
